FAERS Safety Report 9357948 (Version 2)
Quarter: 2013Q2

REPORT INFORMATION
  Report Type: Report from Study
  Country: DE (occurrence: DE)
  Receive Date: 20130620
  Receipt Date: 20130625
  Transmission Date: 20140414
  Serious: Yes (Hospitalization)
  Sender: FDA-Public Use
  Company Number: DE-ROCHE-1235995

PATIENT
  Age: 63 Year
  Sex: Female
  Weight: 85 kg

DRUGS (3)
  1. ACETYLSALICYLSAURE [Concomitant]
     Indication: PRODUCT USED FOR UNKNOWN INDICATION
     Route: 065
     Dates: start: 20121108
  2. SIMVASTATIN [Concomitant]
     Route: 065
     Dates: start: 20121212
  3. METHOXY POLYETHYLENE GLYCOL-EPOETIN BETA [Suspect]
     Indication: NEPHROGENIC ANAEMIA
     Route: 065
     Dates: start: 20130318, end: 20130511

REACTIONS (1)
  - Transient global amnesia [Unknown]
